FAERS Safety Report 6817566-4 (Version None)
Quarter: 2010Q3

REPORT INFORMATION
  Report Type: 
  Country: None (occurrence: None)
  Receive Date: 20100706
  Receipt Date: 20100628
  Transmission Date: 20110219
  Serious: Yes (Other)
  Sender: FDA-Public Use
  Company Number: TR-ELI_LILLY_AND_COMPANY-TR201006007905

PATIENT
  Age: 34 Year
  Sex: Female

DRUGS (3)
  1. HUMALOG [Suspect]
     Indication: GESTATIONAL DIABETES
     Dosage: 8 U, 3/D (MORNING, NOON, EVENING)
     Route: 058
     Dates: start: 20100308, end: 20100427
  2. FOLIC ACID [Concomitant]
     Dosage: UNK, 2/D
  3. ELEVIT [Concomitant]
     Dosage: UNK, DAILY (1/D)

REACTIONS (2)
  - ABORTION SPONTANEOUS [None]
  - DRUG EXPOSURE DURING PREGNANCY [None]
